FAERS Safety Report 7029601-1 (Version None)
Quarter: 2010Q4

REPORT INFORMATION
  Report Type: 
  Country: None (occurrence: None)
  Receive Date: 20101005
  Receipt Date: 20100924
  Transmission Date: 20110411
  Serious: Yes (Hospitalization)
  Sender: FDA-Public Use
  Company Number: FR-MERCK-1006FRA00064

PATIENT
  Age: 66 Year
  Sex: Female

DRUGS (15)
  1. SINEMET [Suspect]
     Indication: PARKINSON'S DISEASE
     Route: 048
     Dates: end: 20100501
  2. APOMORPHINE HYDROCHLORIDE [Suspect]
     Indication: PARKINSON'S DISEASE
     Route: 051
     Dates: start: 20090801
  3. MODOPAR [Suspect]
     Indication: PARKINSON'S DISEASE
     Route: 048
  4. STALEVO 100 [Suspect]
     Indication: PARKINSON'S DISEASE
     Route: 048
     Dates: end: 20100501
  5. CARBIDOPA AND LEVODOPA [Suspect]
     Indication: PARKINSON'S DISEASE
     Route: 048
     Dates: end: 20100501
  6. AVLOCARDYL [Concomitant]
     Route: 048
  7. OMEPRAZOLE [Concomitant]
     Route: 048
  8. SEGLOR [Concomitant]
     Route: 048
  9. XANAX [Concomitant]
     Route: 048
  10. PRAMIPEXOLE DIHYDROCHLORIDE [Concomitant]
     Route: 048
  11. KALEORID [Concomitant]
     Route: 048
  12. LOPERAMIDE HCL [Concomitant]
     Route: 065
  13. PANFUREX [Concomitant]
     Route: 065
  14. NORSET [Concomitant]
     Route: 048
  15. ZOLPIDEM TARTRATE [Concomitant]
     Route: 048

REACTIONS (1)
  - ANAEMIA HAEMOLYTIC AUTOIMMUNE [None]
